FAERS Safety Report 22184377 (Version 1)
Quarter: 2023Q2

REPORT INFORMATION
  Report Type: Spontaneous
  Country: FR (occurrence: FR)
  Receive Date: 20230407
  Receipt Date: 20230407
  Transmission Date: 20230722
  Serious: Yes (Other)
  Sender: FDA-Public Use
  Company Number: None

PATIENT
  Age: 52 Year
  Sex: Male

DRUGS (1)
  1. KYPROLIS [Suspect]
     Active Substance: CARFILZOMIB
     Indication: Plasma cell myeloma
     Dosage: UNK
     Route: 042
     Dates: start: 20220829, end: 20230112

REACTIONS (1)
  - Left ventricular dysfunction [Recovering/Resolving]

NARRATIVE: CASE EVENT DATE: 20230317
